FAERS Safety Report 18916971 (Version 2)
Quarter: 2021Q1

REPORT INFORMATION
  Report Type: Spontaneous
  Country: DE (occurrence: DE)
  Receive Date: 20210219
  Receipt Date: 20210306
  Transmission Date: 20210420
  Serious: Yes (Other)
  Sender: FDA-Public Use
  Company Number: NVSC2021DE039516

PATIENT
  Sex: Female

DRUGS (1)
  1. LETROZOLE. [Suspect]
     Active Substance: LETROZOLE
     Indication: PRODUCT USE IN UNAPPROVED INDICATION
     Dosage: 2.5 MG
     Route: 065
     Dates: start: 201403

REACTIONS (1)
  - Corneal opacity [Unknown]
